FAERS Safety Report 8360369-2 (Version None)
Quarter: 2012Q1

REPORT INFORMATION
  Report Type: 
  Country: None (occurrence: None)
  Receive Date: 20120323
  Receipt Date: 20110727
  Transmission Date: 20120608
  Serious: Yes (Other)
  Sender: FDA-Public Use
  Company Number: 163-21880-11050037

PATIENT
  Age: 72 Year
  Sex: Female
  Weight: 81.6475 kg

DRUGS (16)
  1. ASPIRIN [Concomitant]
  2. ASPIRIN [Concomitant]
  3. LASIX [Concomitant]
  4. TRAMADOL HCL [Concomitant]
  5. MELPHALAN HYDROCHLORIDE [Concomitant]
  6. KLOR-CON (POTASSIUM) [Concomitant]
  7. VICODIN [Concomitant]
  8. ZEMPLAR [Concomitant]
  9. PROMETHAZINE [Concomitant]
  10. SIMVASTATIN [Concomitant]
  11. LOSARTAN POTASSIUM [Concomitant]
  12. PRILOSEC [Concomitant]
  13. ROBAXIN [Concomitant]
  14. CLARITIN [Concomitant]
  15. XANAX [Concomitant]
  16. REVLIMID [Suspect]
     Indication: MULTIPLE MYELOMA
     Dosage: 10 MG, DAILY, PO
     Route: 048
     Dates: start: 20100801

REACTIONS (6)
  - CONSTIPATION [None]
  - GASTROINTESTINAL TRACT IRRITATION [None]
  - DECREASED APPETITE [None]
  - PLATELET COUNT DECREASED [None]
  - GENITAL HAEMORRHAGE [None]
  - DIARRHOEA [None]
